FAERS Safety Report 25318590 (Version 1)
Quarter: 2025Q2

REPORT INFORMATION
  Report Type: Spontaneous
  Country: US (occurrence: US)
  Receive Date: 20250515
  Receipt Date: 20250515
  Transmission Date: 20250716
  Serious: Yes (Other)
  Sender: MYLAN
  Company Number: US-MYLANLABS-2025M1040540

PATIENT
  Age: 65 Year
  Sex: Female

DRUGS (28)
  1. TOBRAMYCIN [Suspect]
     Active Substance: TOBRAMYCIN
     Indication: Pneumonia
     Dosage: 300 MILLIGRAM, BID; FOR 28-DAY CYCLE
  2. TOBRAMYCIN [Suspect]
     Active Substance: TOBRAMYCIN
     Dosage: 300 MILLIGRAM, BID; FOR 28-DAY CYCLE
     Route: 055
  3. TOBRAMYCIN [Suspect]
     Active Substance: TOBRAMYCIN
     Dosage: 300 MILLIGRAM, BID; FOR 28-DAY CYCLE
     Route: 055
  4. TOBRAMYCIN [Suspect]
     Active Substance: TOBRAMYCIN
     Dosage: 300 MILLIGRAM, BID; FOR 28-DAY CYCLE
  5. OMEPRAZOLE [Suspect]
     Active Substance: OMEPRAZOLE
     Indication: Product used for unknown indication
  6. OMEPRAZOLE [Suspect]
     Active Substance: OMEPRAZOLE
     Route: 065
  7. OMEPRAZOLE [Suspect]
     Active Substance: OMEPRAZOLE
     Route: 065
  8. OMEPRAZOLE [Suspect]
     Active Substance: OMEPRAZOLE
  9. TACROLIMUS [Concomitant]
     Active Substance: TACROLIMUS
     Indication: Immunosuppressant drug therapy
  10. TACROLIMUS [Concomitant]
     Active Substance: TACROLIMUS
     Route: 065
  11. TACROLIMUS [Concomitant]
     Active Substance: TACROLIMUS
     Route: 065
  12. TACROLIMUS [Concomitant]
     Active Substance: TACROLIMUS
  13. EVEROLIMUS [Concomitant]
     Active Substance: EVEROLIMUS
     Indication: Immunosuppressant drug therapy
  14. EVEROLIMUS [Concomitant]
     Active Substance: EVEROLIMUS
     Route: 065
  15. EVEROLIMUS [Concomitant]
     Active Substance: EVEROLIMUS
     Route: 065
  16. EVEROLIMUS [Concomitant]
     Active Substance: EVEROLIMUS
  17. MYCOPHENOLIC ACID [Concomitant]
     Active Substance: MYCOPHENOLIC ACID
     Indication: Immunosuppressant drug therapy
  18. MYCOPHENOLIC ACID [Concomitant]
     Active Substance: MYCOPHENOLIC ACID
     Route: 065
  19. MYCOPHENOLIC ACID [Concomitant]
     Active Substance: MYCOPHENOLIC ACID
     Route: 065
  20. MYCOPHENOLIC ACID [Concomitant]
     Active Substance: MYCOPHENOLIC ACID
  21. PREDNISONE [Concomitant]
     Active Substance: PREDNISONE
     Indication: Immunosuppressant drug therapy
  22. PREDNISONE [Concomitant]
     Active Substance: PREDNISONE
     Route: 065
  23. PREDNISONE [Concomitant]
     Active Substance: PREDNISONE
     Route: 065
  24. PREDNISONE [Concomitant]
     Active Substance: PREDNISONE
  25. CYCLOSPORINE [Concomitant]
     Active Substance: CYCLOSPORINE
     Indication: Immunosuppressant drug therapy
  26. CYCLOSPORINE [Concomitant]
     Active Substance: CYCLOSPORINE
     Route: 065
  27. CYCLOSPORINE [Concomitant]
     Active Substance: CYCLOSPORINE
     Route: 065
  28. CYCLOSPORINE [Concomitant]
     Active Substance: CYCLOSPORINE

REACTIONS (3)
  - Renal impairment [Recovered/Resolved]
  - Acute kidney injury [Recovered/Resolved]
  - Overdose [Recovered/Resolved]
